FAERS Safety Report 8240739-3 (Version None)
Quarter: 2012Q1

REPORT INFORMATION
  Report Type: 
  Country: None (occurrence: None)
  Receive Date: 20120328
  Receipt Date: 20120320
  Transmission Date: 20120608
  Serious: Yes (Other)
  Sender: FDA-Public Use
  Company Number: US-FRI-1000029194

PATIENT
  Sex: Female

DRUGS (1)
  1. LEVOTHROID [Suspect]
     Dosage: 125 MCG
     Route: 048
     Dates: start: 19990101

REACTIONS (3)
  - DIZZINESS [None]
  - ELECTROCARDIOGRAM ABNORMAL [None]
  - BLOOD PRESSURE INCREASED [None]
